FAERS Safety Report 21272756 (Version 1)
Quarter: 2022Q3

REPORT INFORMATION
  Report Type: Spontaneous
  Country: IT (occurrence: IT)
  Receive Date: 20220831
  Receipt Date: 20220831
  Transmission Date: 20221026
  Serious: Yes (Other)
  Sender: FDA-Public Use
  Company Number: IT-SUN PHARMACEUTICAL INDUSTRIES LTD-2022RR-352495

PATIENT
  Age: 38 Year
  Sex: Female

DRUGS (11)
  1. GEMCITABINE [Suspect]
     Active Substance: GEMCITABINE
     Indication: Neoplasm malignant
     Dosage: 1000 MILLIGRAM/SQ. METER, UNK
     Route: 065
     Dates: start: 201607, end: 201609
  2. DOXORUBICIN HYDROCHLORIDE [Suspect]
     Active Substance: DOXORUBICIN HYDROCHLORIDE
     Indication: Neoplasm malignant
     Dosage: 30 MILLIGRAM/SQ. METER, 6 CYCLES, 180 MG/M2 IN TOTAL
     Route: 065
     Dates: start: 201305, end: 201309
  3. DOXORUBICIN HYDROCHLORIDE [Suspect]
     Active Substance: DOXORUBICIN HYDROCHLORIDE
     Dosage: 30 MG/M2 EVERY 3 WEEKS FOR 6 CYCLES
     Dates: start: 201810, end: 201902
  4. DOXORUBICIN HYDROCHLORIDE [Suspect]
     Active Substance: DOXORUBICIN HYDROCHLORIDE
     Dosage: 20 MG/M2
     Route: 065
  5. TRABECTEDIN [Suspect]
     Active Substance: TRABECTEDIN
     Indication: Neoplasm malignant
     Dosage: 11.1 MILLIGRAM/SQ. METER, EVERY 3 WEEKS FOR 6 CYCLES
     Route: 065
     Dates: start: 201810, end: 201902
  6. CARBOPLATIN [Suspect]
     Active Substance: CARBOPLATIN
     Indication: Neoplasm malignant
     Dosage: 30 MILLIGRAM/SQ. METER, 6 CYCLES, 180 MG/M2 IN TOTAL
     Route: 065
     Dates: start: 201305, end: 201309
  7. CARBOPLATIN [Suspect]
     Active Substance: CARBOPLATIN
     Dosage: UNK
     Route: 065
     Dates: start: 201607, end: 201609
  8. CARBOPLATIN [Suspect]
     Active Substance: CARBOPLATIN
     Dosage: UNK, 4 CYCLES
     Route: 065
     Dates: start: 201709, end: 201801
  9. BEVACIZUMAB [Suspect]
     Active Substance: BEVACIZUMAB
     Indication: Neoplasm malignant
     Dosage: 15 MILLIGRAM/KILOGRAM, FOR 6 CYCLES
     Route: 065
     Dates: start: 201607, end: 201609
  10. BEVACIZUMAB [Suspect]
     Active Substance: BEVACIZUMAB
     Dosage: UNK, 10 CYCLES
     Route: 065
     Dates: start: 201707
  11. OLAPARIB [Suspect]
     Active Substance: OLAPARIB
     Indication: Neoplasm malignant
     Dosage: 400 MILLIGRAM, BID
     Route: 048
     Dates: start: 201801

REACTIONS (3)
  - Hypersensitivity [Unknown]
  - Disease progression [Unknown]
  - Therapeutic product effect incomplete [Unknown]
